FAERS Safety Report 13519091 (Version 1)
Quarter: 2017Q2

REPORT INFORMATION
  Report Type: Spontaneous
  Country: IT (occurrence: IT)
  Receive Date: 20170505
  Receipt Date: 20170505
  Transmission Date: 20170830
  Serious: Yes (Other)
  Sender: FDA-Public Use
  Company Number: IT-JNJFOC-20170503687

PATIENT

DRUGS (5)
  1. SULPHASALAZINE [Concomitant]
     Active Substance: SULFASALAZINE
     Route: 065
  2. GOLIMUMAB [Suspect]
     Active Substance: GOLIMUMAB
     Indication: BEHCET^S SYNDROME
     Route: 058
  3. METHOTREXATE. [Concomitant]
     Active Substance: METHOTREXATE
     Route: 065
  4. CYCLOSPORINE. [Concomitant]
     Active Substance: CYCLOSPORINE
     Route: 065
  5. AZATHIOPRINE. [Concomitant]
     Active Substance: AZATHIOPRINE
     Route: 065

REACTIONS (11)
  - Arthritis [Unknown]
  - Treatment failure [Unknown]
  - Uveitis [Unknown]
  - Laryngospasm [Unknown]
  - Gastrointestinal disorder [Unknown]
  - Behcet^s syndrome [Unknown]
  - Aphthous ulcer [Unknown]
  - Pseudofolliculitis [Unknown]
  - Urticaria [Unknown]
  - Off label use [Unknown]
  - Product use in unapproved indication [Unknown]
